FAERS Safety Report 8173817-8 (Version None)
Quarter: 2012Q1

REPORT INFORMATION
  Report Type: 
  Country: None (occurrence: None)
  Receive Date: 20120229
  Receipt Date: 20120217
  Transmission Date: 20120608
  Serious: Yes (Hospitalization)
  Sender: FDA-Public Use
  Company Number: US-ELI_LILLY_AND_COMPANY-US201112004301

PATIENT
  Sex: Female

DRUGS (23)
  1. TYLENOL                                 /SCH/ [Concomitant]
  2. FORTEO [Suspect]
     Dosage: 20 UG, QD
  3. LIDODERM [Concomitant]
  4. PLAQUENIL [Concomitant]
  5. SENOKOT [Concomitant]
  6. FENTANYL-100 [Concomitant]
     Dosage: UNK, TID
  7. ALBUTEROL [Concomitant]
  8. POTASSIUM CHLORIDE [Concomitant]
  9. CLARITIN [Concomitant]
  10. OXYCODONE HCL [Concomitant]
  11. LAMICTAL [Concomitant]
  12. LOVAZA [Concomitant]
  13. TRAVATAN [Concomitant]
  14. ADVAIR DISKUS 100/50 [Concomitant]
  15. CHLORAZEPAM [Concomitant]
  16. PANCRELIPASE [Concomitant]
  17. PROMETHAZINE [Concomitant]
  18. FORTEO [Suspect]
     Indication: OSTEOPOROSIS
     Dosage: 20 UG, QD
     Route: 065
     Dates: start: 20110801
  19. CITALOPRAM HYDROBROMIDE [Concomitant]
  20. DDAVP [Concomitant]
  21. LYRICA [Concomitant]
  22. METOPROLOL SUCCINATE [Concomitant]
  23. DICLOFENAC EPOLAMINE [Concomitant]

REACTIONS (3)
  - FALL [None]
  - FOOT FRACTURE [None]
  - CLOSTRIDIAL INFECTION [None]
